FAERS Safety Report 4602436-2 (Version None)
Quarter: 2005Q1

REPORT INFORMATION
  Report Type: 
  Country: None (occurrence: None)
  Receive Date: 20050307
  Receipt Date: 20050223
  Transmission Date: 20050727
  Serious: Yes (Death, Other)
  Sender: FDA-Public Use
  Company Number: 2005IM000012

PATIENT
  Age: 34 Year
  Sex: Female
  Weight: 59 kg

DRUGS (9)
  1. ACTIMMUNE [Suspect]
     Indication: FUNGAL INFECTION
     Dosage: 80 UG, QOD, SUBCUTANEOUS
     Route: 058
     Dates: start: 19980518, end: 19980522
  2. FOSCARNET [Concomitant]
  3. GANCICLOVIR [Concomitant]
  4. ITRACONAZOLE [Concomitant]
  5. AMPHOTERICIN B [Concomitant]
  6. TICARCILLIN [Concomitant]
  7. CLAVULANIC ACID [Concomitant]
  8. NEUPOGEN [Concomitant]
  9. SARGRAMOSTIM [Concomitant]

REACTIONS (3)
  - DISEASE PROGRESSION [None]
  - INFECTION [None]
  - LYMPHOPENIA [None]
